FAERS Safety Report 7409112-1 (Version None)
Quarter: 2011Q2

REPORT INFORMATION
  Report Type: 
  Country: None (occurrence: None)
  Receive Date: 20110412
  Receipt Date: 20110331
  Transmission Date: 20111010
  Serious: Yes (Hospitalization, Other)
  Sender: FDA-Public Use
  Company Number: US-ROCHE-751872

PATIENT
  Sex: Male
  Weight: 185 kg

DRUGS (1)
  1. ACCUTANE [Suspect]
     Indication: ACNE
     Route: 065
     Dates: start: 20000225, end: 20001014

REACTIONS (6)
  - SUICIDAL IDEATION [None]
  - INTESTINAL OBSTRUCTION [None]
  - COLITIS ULCERATIVE [None]
  - DEPRESSION [None]
  - INJURY [None]
  - CROHN'S DISEASE [None]
